FAERS Safety Report 16494281 (Version 3)
Quarter: 2020Q3

REPORT INFORMATION
  Report Type: Spontaneous
  Country: FR (occurrence: FR)
  Receive Date: 20190628
  Receipt Date: 20200807
  Transmission Date: 20201102
  Serious: Yes (Death, Hospitalization, Other)
  Sender: FDA-Public Use
  Company Number: PHHY2019FR146255

PATIENT
  Sex: Male
  Weight: .45 kg

DRUGS (12)
  1. MABTHERA [Suspect]
     Active Substance: RITUXIMAB
     Indication: FOETAL EXPOSURE DURING PREGNANCY
     Dosage: MATERNAL DOSE: 2 DF, TOTAL
     Route: 064
     Dates: start: 20161207, end: 20161207
  2. CORTICOSTEROID NOS [Concomitant]
     Active Substance: CORTICOSTEROID NOS
     Dosage: MATERNA, DOSE 80 MG.QD
     Route: 064
  3. ORACILLINE [Suspect]
     Active Substance: PENICILLIN V
     Indication: FOETAL EXPOSURE DURING PREGNANCY
     Dosage: MATERNAL DOSE 2 DF, QD (STRENGHT: 1 000 000 U.I./10 ML)
     Route: 064
     Dates: start: 20161220
  4. CORTICOSTEROID NOS [Concomitant]
     Active Substance: CORTICOSTEROID NOS
     Indication: FOETAL EXPOSURE DURING PREGNANCY
     Dosage: MATERNAL DOSE 80 MG, QD
     Route: 064
  5. CORTICOSTEROID NOS [Concomitant]
     Active Substance: CORTICOSTEROID NOS
     Dosage: MATERNAL DOSE 20 MG, QD
     Route: 064
  6. CORTANCYL [Suspect]
     Active Substance: PREDNISONE
     Dosage: MATERNAL DOSE: 20 MG, QD
     Route: 064
  7. ADRENALINE [Concomitant]
     Active Substance: EPINEPHRINE
     Indication: FOETAL EXPOSURE DURING PREGNANCY
     Dosage: MATERNAL DOSE: UNK
     Route: 064
  8. SPECIAFOLDINE [Suspect]
     Active Substance: FOLIC ACID
     Indication: FOETAL EXPOSURE DURING PREGNANCY
     Dosage: MATERNAL DOSE 1 DF, QD
     Route: 064
     Dates: start: 20161121
  9. PANTOPRAZOLE [Suspect]
     Active Substance: PANTOPRAZOLE
     Indication: FOETAL EXPOSURE DURING PREGNANCY
     Dosage: MATERNAL DOSE: 20 MG, QD
     Route: 064
     Dates: start: 20161121
  10. CORTANCYL [Suspect]
     Active Substance: PREDNISONE
     Indication: FOETAL EXPOSURE DURING PREGNANCY
     Dosage: MATERNAL DOSE 80 MG, QD
     Route: 064
     Dates: start: 20161118
  11. CORTANCYL [Suspect]
     Active Substance: PREDNISONE
     Dosage: MATERNAL DOSE: 80 MG, QD
     Route: 064
     Dates: start: 201701
  12. KARDEGIC [Suspect]
     Active Substance: ASPIRIN DL-LYSINE
     Indication: FOETAL EXPOSURE DURING PREGNANCY
     Dosage: MATERNAL DOSE 1 DF, QD
     Route: 064
     Dates: start: 20161126

REACTIONS (6)
  - Foetal growth restriction [Fatal]
  - Premature baby [Fatal]
  - Low birth weight baby [Unknown]
  - Maternal exposure during pregnancy [Unknown]
  - Foetal exposure during pregnancy [Unknown]
  - Multiple organ dysfunction syndrome [Fatal]

NARRATIVE: CASE EVENT DATE: 20161220
